FAERS Safety Report 17291784 (Version 1)
Quarter: 2020Q1

REPORT INFORMATION
  Report Type: Spontaneous
  Country: CN (occurrence: CN)
  Receive Date: 20200121
  Receipt Date: 20200121
  Transmission Date: 20200409
  Serious: Yes (Other)
  Sender: FDA-Public Use
  Company Number: CN-BAYER-2019-233261

PATIENT
  Age: 4 Decade
  Sex: Female

DRUGS (2)
  1. YASMIN [Suspect]
     Active Substance: DROSPIRENONE\ETHINYL ESTRADIOL
     Indication: ENDOMETRIAL HYPERPLASIA
     Dosage: UNK
     Route: 048
     Dates: start: 20191118, end: 201912
  2. YASMIN [Suspect]
     Active Substance: DROSPIRENONE\ETHINYL ESTRADIOL
     Indication: ENDOMETRIAL HYPERPLASIA
     Dosage: UNK
     Route: 048
     Dates: start: 20191015, end: 20191103

REACTIONS (5)
  - Pregnancy on oral contraceptive [None]
  - Metrorrhagia [Recovered/Resolved]
  - Product dose omission [None]
  - Off label use [None]
  - Product use in unapproved indication [None]

NARRATIVE: CASE EVENT DATE: 20191015
